FAERS Safety Report 9731939 (Version 1)
Quarter: 2013Q4

REPORT INFORMATION
  Report Type: Report from Study
  Country: IL (occurrence: IL)
  Receive Date: 20131205
  Receipt Date: 20131205
  Transmission Date: 20140711
  Serious: Yes (Death, Hospitalization)
  Sender: FDA-Public Use
  Company Number: PHHY2013IL140705

PATIENT
  Age: 66 Year
  Sex: Female

DRUGS (2)
  1. SANDOSTATIN LAR [Suspect]
     Indication: CARCINOID TUMOUR
     Dosage: 30 MG,PER 4 WEEKS
     Dates: start: 20070730
  2. SANDOSTATIN LAR [Suspect]
     Dosage: 30 MG,PER 4 WEEKS
     Dates: start: 20131013

REACTIONS (1)
  - Death [Fatal]
